FAERS Safety Report 15522959 (Version 3)
Quarter: 2018Q4

REPORT INFORMATION
  Report Type: Spontaneous
  Country: US (occurrence: US)
  Receive Date: 20181017
  Receipt Date: 20181121
  Transmission Date: 20190205
  Serious: No
  Sender: FDA-Public Use
  Company Number: US-JNJFOC-20180932870

PATIENT
  Age: 77 Year
  Sex: Male
  Weight: 116.12 kg

DRUGS (4)
  1. ZYTIGA [Suspect]
     Active Substance: ABIRATERONE ACETATE
     Indication: PRODUCT USED FOR UNKNOWN INDICATION
     Route: 048
  2. NICORETTE [Concomitant]
     Active Substance: NICOTINE
     Indication: NICOTINE DEPENDENCE
     Route: 065
  3. COUMADIN [Suspect]
     Active Substance: WARFARIN SODIUM
     Indication: CARDIAC VALVE PROSTHESIS USER
     Route: 065
     Dates: end: 201809
  4. COUMADIN [Suspect]
     Active Substance: WARFARIN SODIUM
     Indication: CARDIAC VALVE PROSTHESIS USER
     Route: 065
     Dates: start: 20180922

REACTIONS (5)
  - Amnesia [Unknown]
  - Device damage [Unknown]
  - Product packaging quantity issue [Unknown]
  - Urinary tract infection [Not Recovered/Not Resolved]
  - Anticoagulation drug level above therapeutic [Unknown]

NARRATIVE: CASE EVENT DATE: 201805
